FAERS Safety Report 7019481-2 (Version None)
Quarter: 2010Q3

REPORT INFORMATION
  Report Type: 
  Country: None (occurrence: None)
  Receive Date: 20100928
  Receipt Date: 20100916
  Transmission Date: 20110219
  Serious: No
  Sender: FDA-Public Use
  Company Number: US-BIOGENIDEC-2010BI032713

PATIENT
  Age: 47 Year
  Sex: Female

DRUGS (3)
  1. TYSABRI [Suspect]
     Indication: MULTIPLE SCLEROSIS
     Route: 042
     Dates: start: 20070822, end: 20080729
  2. TYSABRI [Suspect]
     Route: 042
     Dates: start: 20081216, end: 20091223
  3. TYSABRI [Suspect]
     Route: 042
     Dates: start: 20100420

REACTIONS (1)
  - ASTHENIA [None]
